FAERS Safety Report 4497994-5 (Version None)
Quarter: 2004Q4

REPORT INFORMATION
  Report Type: 
  Country: None (occurrence: None)
  Receive Date: 20041109
  Receipt Date: 20041109
  Transmission Date: 20050328
  Serious: Yes (Hospitalization)
  Sender: FDA-Public Use
  Company Number: None

PATIENT
  Age: 54 Year
  Sex: Male
  Weight: 92.5 kg

DRUGS (5)
  1. NAPROXEN [Suspect]
     Indication: BACK PAIN
     Dosage: 1 TABLET   TWICE A DAY ORAL
     Route: 048
     Dates: start: 20040816, end: 20040927
  2. ALBUTEROL [Concomitant]
  3. CYCLOBENZAPRINE [Concomitant]
  4. FLUOXETINE [Concomitant]
  5. TRIAMCINOLONE [Concomitant]

REACTIONS (5)
  - EROSIVE DUODENITIS [None]
  - EROSIVE OESOPHAGITIS [None]
  - HAEMATEMESIS [None]
  - MEDICATION ERROR [None]
  - UPPER GASTROINTESTINAL HAEMORRHAGE [None]
